FAERS Safety Report 8474894-7 (Version None)
Quarter: 2012Q2

REPORT INFORMATION
  Report Type: 
  Country: None (occurrence: None)
  Receive Date: 20120628
  Receipt Date: 20120625
  Transmission Date: 20120825
  Serious: No
  Sender: FDA-Public Use
  Company Number: US-PFIZER INC-2012152917

PATIENT
  Sex: Female
  Weight: 99.773 kg

DRUGS (14)
  1. GABAPENTIN [Concomitant]
     Indication: FIBROMYALGIA
     Dosage: UNK
  2. LYRICA [Suspect]
     Indication: MYALGIA
     Dosage: 75 MG, 3X/DAY
     Route: 048
     Dates: end: 20120601
  3. MELOXICAM [Concomitant]
     Indication: ARTHRITIS
     Dosage: UNK
  4. CETIRIZINE [Concomitant]
     Indication: HYPERSENSITIVITY
     Dosage: UNK
  5. ASCORBIC ACID [Concomitant]
     Dosage: UNK
  6. CLONAZEPAM [Concomitant]
     Indication: TREMOR
     Dosage: 0.5 MG, 2X/DAY
  7. SERTRALINE [Concomitant]
     Indication: DEPRESSION
     Dosage: UNK
  8. RANITIDINE [Concomitant]
     Dosage: UNK
  9. FLONASE [Concomitant]
     Indication: HYPERSENSITIVITY
     Dosage: UNK
  10. ACETAMINOPHEN [Concomitant]
     Dosage: UNK
  11. SYNTHROID [Concomitant]
     Indication: HYPOTHYROIDISM
     Dosage: UNK
  12. LYRICA [Suspect]
     Indication: PAIN
     Dosage: 75 MG, 2X/DAY
     Route: 048
     Dates: start: 20120601
  13. SIMVASTATIN [Concomitant]
     Indication: BLOOD CHOLESTEROL INCREASED
     Dosage: 80 MG, UNK
  14. CARBAMAZEPINE [Concomitant]
     Indication: CONVULSION
     Dosage: 200 MG, UNK

REACTIONS (1)
  - INSOMNIA [None]
